FAERS Safety Report 15487159 (Version 1)
Quarter: 2018Q4

REPORT INFORMATION
  Report Type: Spontaneous
  Country: US (occurrence: US)
  Receive Date: 20181011
  Receipt Date: 20181011
  Transmission Date: 20190205
  Serious: Yes (Other)
  Sender: FDA-Public Use
  Company Number: US-BAYER-2018-185886

PATIENT
  Age: 37 Year
  Sex: Female

DRUGS (2)
  1. ACETYLSALICYLIC ACID({=100 MG) [Suspect]
     Active Substance: ASPIRIN
     Indication: ANTIPHOSPHOLIPID SYNDROME
     Dosage: UNK
  2. HEPARIN [Suspect]
     Active Substance: HEPARIN SODIUM
     Indication: ANTIPHOSPHOLIPID SYNDROME
     Dosage: UNK

REACTIONS (5)
  - Off label use [None]
  - Intra-abdominal haemorrhage [Recovered/Resolved with Sequelae]
  - Maternal exposure during pregnancy [None]
  - Product use in unapproved indication [None]
  - Postpartum haemorrhage [Recovered/Resolved with Sequelae]
